FAERS Safety Report 9447437 (Version 2)
Quarter: 2013Q3

REPORT INFORMATION
  Report Type: Spontaneous
  Country: US (occurrence: US)
  Receive Date: 20130808
  Receipt Date: 20130917
  Transmission Date: 20140515
  Serious: No
  Sender: FDA-Public Use
  Company Number: US-PFIZER INC-2013230395

PATIENT
  Age: 55 Year
  Sex: Female
  Weight: 74.83 kg

DRUGS (2)
  1. LYRICA [Suspect]
     Dosage: 375 MG, 2X/DAY
     Dates: end: 201308
  2. GLUCOPHAGE [Concomitant]
     Dosage: 500 MG, DAILY

REACTIONS (4)
  - Overdose [Recovered/Resolved]
  - Pain in extremity [Unknown]
  - Insomnia [Unknown]
  - Burning sensation [Unknown]
